FAERS Safety Report 20780544 (Version 4)
Quarter: 2022Q3

REPORT INFORMATION
  Report Type: Spontaneous
  Country: US (occurrence: US)
  Receive Date: 20220504
  Receipt Date: 20220720
  Transmission Date: 20221027
  Serious: Yes (Other)
  Sender: FDA-Public Use
  Company Number: US-BRISTOL-MYERS SQUIBB COMPANY-2022-025554

PATIENT
  Age: 25 Year
  Sex: Female

DRUGS (4)
  1. THALOMID [Suspect]
     Active Substance: THALIDOMIDE
     Indication: Product used for unknown indication
     Dosage: DRUG TAKEN BY FATHER ORALLY
     Route: 050
     Dates: start: 201906, end: 20220419
  2. OTEZLA [Suspect]
     Active Substance: APREMILAST
     Indication: Product used for unknown indication
     Dosage: DRUG TAKEN BY THE FATHER ORALLY
     Route: 050
  3. PREDNISONE [Suspect]
     Active Substance: PREDNISONE
     Indication: Product used for unknown indication
     Dosage: DRUG TAKEN BY THE FATHER ORALLY
     Route: 050
  4. METHOTREXATE [Suspect]
     Active Substance: METHOTREXATE
     Indication: Product used for unknown indication
     Dosage: DRUG TAKEN BY THE FATHER ORALLY
     Route: 050

REACTIONS (2)
  - Exposure via body fluid [Unknown]
  - Pregnancy with contraceptive device [Unknown]
